FAERS Safety Report 25719291 (Version 1)
Quarter: 2025Q3

REPORT INFORMATION
  Report Type: Spontaneous
  Country: US (occurrence: US)
  Receive Date: 20250824
  Receipt Date: 20250824
  Transmission Date: 20251021
  Serious: Yes (Other)
  Sender: SANOFI AVENTIS
  Company Number: US-SA-2025SA250761

PATIENT
  Age: 14 Year
  Sex: Male

DRUGS (1)
  1. DUPIXENT [Suspect]
     Active Substance: DUPILUMAB
     Indication: Eosinophilic oesophagitis
     Dosage: 300 MG, QW
     Route: 058
     Dates: start: 202506

REACTIONS (5)
  - Oesophageal food impaction [Unknown]
  - Food refusal [Unknown]
  - Dysphagia [Unknown]
  - Odynophagia [Unknown]
  - Retching [Unknown]

NARRATIVE: CASE EVENT DATE: 20250801
